FAERS Safety Report 6424428-3 (Version None)
Quarter: 2009Q4

REPORT INFORMATION
  Report Type: 
  Country: None (occurrence: None)
  Receive Date: 20091029
  Receipt Date: 20091012
  Transmission Date: 20100525
  Serious: Yes (Hospitalization, Other)
  Sender: FDA-Public Use
  Company Number: CLOF-1000676

PATIENT
  Age: 23 Year
  Sex: Male
  Weight: 81 kg

DRUGS (4)
  1. EVOLTRA (CLOFARABINE) SOLUTION FOR INFUSION, MG/M2 [Suspect]
     Indication: ACUTE LYMPHOCYTIC LEUKAEMIA
     Dosage: 40 MG/M2, QDX5, INTRAVENOUS ; 30 MG/M2, QDX5, INTRAVENOUS
     Route: 042
     Dates: start: 20090621, end: 20090625
  2. EVOLTRA (CLOFARABINE) SOLUTION FOR INFUSION, MG/M2 [Suspect]
     Indication: ACUTE LYMPHOCYTIC LEUKAEMIA
     Dosage: 40 MG/M2, QDX5, INTRAVENOUS ; 30 MG/M2, QDX5, INTRAVENOUS
     Route: 042
     Dates: start: 20090810, end: 20090814
  3. CYTARABINE [Suspect]
     Indication: ACUTE LYMPHOCYTIC LEUKAEMIA
     Dosage: 1 G/M2, QDX5, INTRAVENOUS ; 1 G/M2, QDX5, INTRAVENOUS
     Route: 042
     Dates: start: 20090621, end: 20090625
  4. CYTARABINE [Suspect]
     Indication: ACUTE LYMPHOCYTIC LEUKAEMIA
     Dosage: 1 G/M2, QDX5, INTRAVENOUS ; 1 G/M2, QDX5, INTRAVENOUS
     Route: 042
     Dates: start: 20090810, end: 20090814

REACTIONS (27)
  - ANAEMIA [None]
  - APLASIA [None]
  - ARTHROPATHY [None]
  - BLOOD CULTURE POSITIVE [None]
  - CHEST PAIN [None]
  - CHORIORETINITIS [None]
  - DEVICE RELATED INFECTION [None]
  - DRUG HYPERSENSITIVITY [None]
  - ESCHERICHIA INFECTION [None]
  - GINGIVAL DISORDER [None]
  - HAEMORRHAGE [None]
  - HERPES SIMPLEX [None]
  - JUGULAR VEIN THROMBOSIS [None]
  - LUNG NEOPLASM [None]
  - MYOCARDITIS [None]
  - OXYGEN SATURATION DECREASED [None]
  - PURPURA [None]
  - PYREXIA [None]
  - RASH PAPULAR [None]
  - RETINAL HAEMORRHAGE [None]
  - SCOTOMA [None]
  - SINUS DISORDER [None]
  - SPLENOMEGALY [None]
  - STAPHYLOCOCCAL INFECTION [None]
  - THROMBOCYTOPENIA [None]
  - TOXOPLASMOSIS [None]
  - TREATMENT FAILURE [None]
